FAERS Safety Report 18081737 (Version 2)
Quarter: 2020Q3

REPORT INFORMATION
  Report Type: Report from Study
  Country: AR (occurrence: AR)
  Receive Date: 20200728
  Receipt Date: 20200813
  Transmission Date: 20201103
  Serious: Yes (Hospitalization, Other)
  Sender: FDA-Public Use
  Company Number: AR-INCYTE CORPORATION-2020IN006527

PATIENT

DRUGS (3)
  1. JAKAVI [Suspect]
     Active Substance: RUXOLITINIB
     Dosage: 20 MG
     Route: 048
  2. JAKAVI [Suspect]
     Active Substance: RUXOLITINIB
     Indication: MYELOFIBROSIS
     Dosage: 20 MG, BID
     Route: 048
     Dates: start: 2018
  3. JAKAVI [Suspect]
     Active Substance: RUXOLITINIB
     Dosage: 40 MG, QD
     Route: 048
     Dates: start: 20180715

REACTIONS (12)
  - Gait disturbance [Unknown]
  - Pruritus [Recovered/Resolved]
  - Renal disorder [Unknown]
  - Haematocrit abnormal [Unknown]
  - Pain [Unknown]
  - Sensitisation [Not Recovered/Not Resolved]
  - Dyspnoea [Unknown]
  - Inappropriate schedule of product administration [Unknown]
  - Anaemia [Unknown]
  - Eating disorder [Unknown]
  - Speech disorder [Unknown]
  - Splenomegaly [Not Recovered/Not Resolved]

NARRATIVE: CASE EVENT DATE: 202003
